FAERS Safety Report 5564050-4 (Version None)
Quarter: 2007Q4

REPORT INFORMATION
  Report Type: 
  Country: None (occurrence: None)
  Receive Date: 20071217
  Receipt Date: 20071121
  Transmission Date: 20080405
  Serious: No
  Sender: FDA-Public Use
  Company Number: US-BOEHRINGER INGELHEIM PHARMACEUTICALS, INC.-2007-BP-24930BP

PATIENT
  Sex: Female

DRUGS (2)
  1. CATAPRES-TTS-1 [Suspect]
     Indication: HOT FLUSH
     Route: 061
     Dates: start: 20070901, end: 20071121
  2. TRAZODONE HCL [Concomitant]
     Indication: ANXIETY
     Route: 048

REACTIONS (1)
  - DRUG EFFECT DECREASED [None]
